FAERS Safety Report 10664647 (Version 1)
Quarter: 2014Q4

REPORT INFORMATION
  Report Type: Spontaneous
  Country: US (occurrence: None)
  Receive Date: 20141218
  Receipt Date: 20141218
  Transmission Date: 20150529
  Serious: No
  Sender: FDA-Public Use
  Company Number: None

PATIENT
  Age: 63 Year
  Sex: Male

DRUGS (10)
  1. ONDANSETRON [Concomitant]
     Active Substance: ONDANSETRON
  2. LARATADINE [Concomitant]
  3. SPRYCEL [Suspect]
     Active Substance: DASATINIB
     Indication: CHRONIC MYELOID LEUKAEMIA
     Route: 048
     Dates: start: 20140814
  4. BUDESONIDE. [Concomitant]
     Active Substance: BUDESONIDE
  5. TASIGNA [Concomitant]
     Active Substance: NILOTINIB
  6. MUCINEX [Concomitant]
     Active Substance: GUAIFENESIN
  7. FUROSEMIDE. [Concomitant]
     Active Substance: FUROSEMIDE
  8. AMOX-CLAV [Concomitant]
     Active Substance: AMOXICILLIN\CLAVULANATE POTASSIUM
  9. PREDNISONE. [Concomitant]
     Active Substance: PREDNISONE
  10. ALEASTINE [Concomitant]

REACTIONS (7)
  - Respiratory tract infection viral [None]
  - Pyrexia [None]
  - Acne [None]
  - Sinusitis [None]
  - Rash [None]
  - Dyspnoea [None]
  - Abdominal distension [None]
